FAERS Safety Report 25659450 (Version 1)
Quarter: 2025Q3

REPORT INFORMATION
  Report Type: Report from Study
  Country: US (occurrence: US)
  Receive Date: 20250808
  Receipt Date: 20250808
  Transmission Date: 20251020
  Serious: Yes (Hospitalization, Other)
  Sender: BAYER HEALTHCARE PHARMACEUTICALS INC.
  Company Number: US-BAYER-2025A073744

PATIENT
  Age: 62 Year
  Sex: Male

DRUGS (15)
  1. NUBEQA [Suspect]
     Active Substance: DAROLUTAMIDE
     Indication: Chronic obstructive pulmonary disease
     Dosage: 600 MG, BID
     Route: 048
     Dates: start: 202505, end: 2025
  2. NUBEQA [Suspect]
     Active Substance: DAROLUTAMIDE
     Indication: Neoplasm prostate
     Dosage: 300 MG, BID
     Route: 048
     Dates: start: 2025, end: 2025
  3. NUBEQA [Suspect]
     Active Substance: DAROLUTAMIDE
     Indication: Prostate cancer
     Dosage: 300 MG, BID
     Route: 048
     Dates: start: 2025
  4. BICALUTAMIDE [Concomitant]
     Active Substance: BICALUTAMIDE
  5. BUPROPION HYDROCHLORIDE [Concomitant]
     Active Substance: BUPROPION HYDROCHLORIDE
  6. ELIGARD [Concomitant]
     Active Substance: LEUPROLIDE ACETATE
  7. HYDROCODONE [Concomitant]
     Active Substance: HYDROCODONE
  8. MORPHINE SULFATE [Concomitant]
     Active Substance: MORPHINE SULFATE
  9. ONDANSETRON [Concomitant]
     Active Substance: ONDANSETRON
  10. PROCHLORPERAZINE [Concomitant]
     Active Substance: PROCHLORPERAZINE
  11. TRELEGY ELLIPTA [Concomitant]
     Active Substance: FLUTICASONE FUROATE\UMECLIDINIUM BROMIDE\VILANTEROL TRIFENATATE
  12. COLACE [Concomitant]
     Active Substance: DOCUSATE SODIUM
  13. PANTOPRAZOLE [Concomitant]
     Active Substance: PANTOPRAZOLE
  14. TAMSULOSIN HYDROCHLORIDE [Concomitant]
     Active Substance: TAMSULOSIN HYDROCHLORIDE
  15. XGEVA [Concomitant]
     Active Substance: DENOSUMAB

REACTIONS (18)
  - Prostatic specific antigen increased [Recovering/Resolving]
  - Finger amputation [Not Recovered/Not Resolved]
  - Nausea [Recovering/Resolving]
  - Vomiting [Recovering/Resolving]
  - Candida infection [Recovered/Resolved]
  - Constipation [None]
  - Depression [None]
  - Product dose omission in error [None]
  - Product dose omission in error [Unknown]
  - Night sweats [Not Recovered/Not Resolved]
  - Hot flush [Not Recovered/Not Resolved]
  - Middle insomnia [Not Recovered/Not Resolved]
  - Skin exfoliation [Not Recovered/Not Resolved]
  - Hyperkeratosis [Not Recovered/Not Resolved]
  - Product dose omission issue [Not Recovered/Not Resolved]
  - Product use in unapproved indication [None]
  - Dry skin [None]
  - Peripheral swelling [None]

NARRATIVE: CASE EVENT DATE: 20250101
